FAERS Safety Report 18510144 (Version 2)
Quarter: 2021Q3

REPORT INFORMATION
  Report Type: Spontaneous
  Country: US (occurrence: US)
  Receive Date: 20201117
  Receipt Date: 20210728
  Transmission Date: 20211014
  Serious: Yes (Other)
  Sender: FDA-Public Use
  Company Number: US-SA-2020SA322474

PATIENT
  Age: 39 Year
  Sex: Male

DRUGS (1)
  1. ZANTAC [Suspect]
     Active Substance: RANITIDINE HYDROCHLORIDE
     Dosage: 150 MG, QW
     Dates: start: 201301, end: 201601

REACTIONS (2)
  - Neoplasm malignant [Unknown]
  - Bladder cancer [Unknown]

NARRATIVE: CASE EVENT DATE: 20161001
